FAERS Safety Report 9705574 (Version 2)
Quarter: 2013Q4

REPORT INFORMATION
  Report Type: Spontaneous
  Country: US (occurrence: US)
  Receive Date: 20131122
  Receipt Date: 20131122
  Transmission Date: 20140711
  Serious: No
  Sender: FDA-Public Use
  Company Number: US-GILEAD-2008-0016962

PATIENT
  Sex: Female
  Weight: 61.69 kg

DRUGS (12)
  1. LETAIRIS [Suspect]
     Indication: PULMONARY ARTERIAL HYPERTENSION
     Route: 048
     Dates: start: 20080523
  2. LETAIRIS [Suspect]
     Dates: end: 20080610
  3. ZIAC [Concomitant]
     Route: 048
  4. REVATIO [Concomitant]
     Route: 048
  5. LASIX [Concomitant]
     Route: 048
  6. AMARYL [Concomitant]
     Route: 048
  7. COUMADIN [Concomitant]
     Route: 048
  8. NORVASC [Concomitant]
     Route: 048
  9. SYNTHROID [Concomitant]
     Route: 048
  10. SIMVASTATIN [Concomitant]
     Route: 048
  11. METFORMIN [Concomitant]
     Route: 048
  12. POTASSIUM CHLORIDE [Concomitant]
     Route: 048

REACTIONS (3)
  - Dyspnoea [Unknown]
  - Swelling [Unknown]
  - Weight increased [Unknown]
